FAERS Safety Report 4704971-5 (Version None)
Quarter: 2005Q2

REPORT INFORMATION
  Report Type: 
  Country: None (occurrence: None)
  Receive Date: 20050629
  Receipt Date: 20050629
  Transmission Date: 20051028
  Serious: Yes (Other)
  Sender: FDA-Public Use
  Company Number: None

PATIENT
  Age: 38 Year
  Sex: Female
  Weight: 48.0813 kg

DRUGS (1)
  1. ZICAM NASAL GEL 2 X SPRAY [Suspect]
     Indication: NASOPHARYNGITIS
     Dosage: 1 EACH SPRAY NASAL
     Route: 045
     Dates: start: 20050505, end: 20050505

REACTIONS (3)
  - APPLICATION SITE IRRITATION [None]
  - SINUSITIS [None]
  - SNEEZING [None]
